FAERS Safety Report 22844262 (Version 2)
Quarter: 2024Q1

REPORT INFORMATION
  Report Type: Report from Study
  Country: US (occurrence: US)
  Receive Date: 20230821
  Receipt Date: 20240322
  Transmission Date: 20240410
  Serious: Yes (Death, Other)
  Sender: FDA-Public Use
  Company Number: US-ACADIA PHARMACEUTICALS INC.-ACA-2023-PIM-003198

PATIENT
  Age: 75 Year
  Sex: Female

DRUGS (22)
  1. NUPLAZID [Suspect]
     Active Substance: PIMAVANSERIN TARTRATE
     Indication: Neurodegeneration with brain iron accumulation disorder
     Dosage: 34 MILLIGRAM, QD
     Route: 048
     Dates: start: 202303, end: 20240301
  2. NUPLAZID [Suspect]
     Active Substance: PIMAVANSERIN TARTRATE
     Indication: Parkinson^s disease
  3. DROXIDOPA [Concomitant]
     Active Substance: DROXIDOPA
  4. ANASTROZOLE [Concomitant]
     Active Substance: ANASTROZOLE
  5. QUETIAPINE FUMARATE [Concomitant]
     Active Substance: QUETIAPINE FUMARATE
  6. OXYBUTYNIN CHLORIDE [Concomitant]
     Active Substance: OXYBUTYNIN CHLORIDE
  7. VITAMIN D3 [Concomitant]
     Active Substance: CHOLECALCIFEROL
  8. VITAMIN B COMPLEX WITH VITAMIN C [ASCORBIC ACID;VITAMIN B COMPLEX] [Concomitant]
  9. MIDODRINE HYDROCHLORIDE [Concomitant]
     Active Substance: MIDODRINE HYDROCHLORIDE
  10. ROPINIROLE [Concomitant]
     Active Substance: ROPINIROLE
     Dosage: ER
  11. APOKYN [Concomitant]
     Active Substance: APOMORPHINE HYDROCHLORIDE
  12. CLONAZEPAM [Concomitant]
     Active Substance: CLONAZEPAM
  13. FLUDROCORTISONE ACETATE [Concomitant]
     Active Substance: FLUDROCORTISONE ACETATE
  14. CARBIDOPA LEVODOPA [Concomitant]
     Active Substance: CARBIDOPA\LEVODOPA
  15. MOVANTIK [Concomitant]
     Active Substance: NALOXEGOL OXALATE
  16. GABAPENTIN [Concomitant]
     Active Substance: GABAPENTIN
  17. LINZESS [Concomitant]
     Active Substance: LINACLOTIDE
  18. PROMETHAZINE HYDROCHLORIDE [Concomitant]
     Active Substance: PROMETHAZINE HYDROCHLORIDE
  19. COMBIVENT [Concomitant]
     Active Substance: ALBUTEROL SULFATE\IPRATROPIUM BROMIDE
  20. ASPIRIN [Concomitant]
     Active Substance: ASPIRIN
  21. MILK OF MAGNESIA [Concomitant]
     Active Substance: MAGNESIUM HYDROXIDE
  22. MIRALAX [Concomitant]
     Active Substance: POLYETHYLENE GLYCOL 3350

REACTIONS (3)
  - Death [Fatal]
  - COVID-19 [Not Recovered/Not Resolved]
  - Nonspecific reaction [Unknown]

NARRATIVE: CASE EVENT DATE: 20240301
